FAERS Safety Report 9311360 (Version 1)
Quarter: 2013Q2

REPORT INFORMATION
  Report Type: Spontaneous
  Country: GB (occurrence: GB)
  Receive Date: 20130528
  Receipt Date: 20130528
  Transmission Date: 20140414
  Serious: Yes (Other)
  Sender: FDA-Public Use
  Company Number: GB-BAYER-2013-062566

PATIENT
  Sex: Female

DRUGS (1)
  1. CANESTEN PESSARY [Suspect]
     Indication: CANDIDA INFECTION
     Route: 067

REACTIONS (3)
  - Vaginal haemorrhage [None]
  - Pain [None]
  - Uterine cervical erosion [None]
